FAERS Safety Report 15356924 (Version 1)
Quarter: 2018Q3

REPORT INFORMATION
  Report Type: Spontaneous
  Country: US (occurrence: US)
  Receive Date: 20180830
  Receipt Date: 20180830
  Transmission Date: 20181010
  Serious: No
  Sender: FDA-Public Use
  Company Number: None

PATIENT
  Age: 50 Year
  Sex: Female
  Weight: 83.25 kg

DRUGS (1)
  1. SUBOXONE [Suspect]
     Active Substance: BUPRENORPHINE HYDROCHLORIDE\NALOXONE HYDROCHLORIDE
     Indication: THERAPY CHANGE
     Dosage: ?          QUANTITY:1 SUBLINGUAL;?
     Route: 060
     Dates: start: 20180815

REACTIONS (1)
  - Oral pain [None]

NARRATIVE: CASE EVENT DATE: 20180828
